FAERS Safety Report 12086555 (Version 1)
Quarter: 2016Q1

REPORT INFORMATION
  Report Type: Spontaneous
  Country: US (occurrence: US)
  Receive Date: 20160217
  Receipt Date: 20160217
  Transmission Date: 20160526
  Serious: No
  Sender: FDA-Public Use
  Company Number: US-ALLERGAN-1504557US

PATIENT
  Sex: Male

DRUGS (6)
  1. RESTASIS [Suspect]
     Active Substance: CYCLOSPORINE
     Indication: DRY EYE
     Dosage: 2 GTT, BID
     Route: 047
  2. METFORMIN [Concomitant]
     Active Substance: METFORMIN HYDROCHLORIDE
     Dosage: UNKNOWN
  3. PROPRANOLOL [Concomitant]
     Active Substance: PROPRANOLOL\PROPRANOLOL HYDROCHLORIDE
     Dosage: UNKNOWN
  4. NEXIUM [Concomitant]
     Active Substance: ESOMEPRAZOLE MAGNESIUM
     Dosage: UNKNOWN
  5. PRAVASTATIN [Concomitant]
     Active Substance: PRAVASTATIN\PRAVASTATIN SODIUM
     Dosage: UNKNOWN
  6. PRIMIDONE. [Concomitant]
     Active Substance: PRIMIDONE
     Dosage: UNKNOWN

REACTIONS (1)
  - Eye irritation [Unknown]
